FAERS Safety Report 10779573 (Version 3)
Quarter: 2016Q4

REPORT INFORMATION
  Report Type: Spontaneous
  Country: US (occurrence: US)
  Receive Date: 20150210
  Receipt Date: 20161031
  Transmission Date: 20170206
  Serious: No
  Sender: FDA-Public Use
  Company Number: US-JNJFOC-20141209449

PATIENT
  Age: 56 Year
  Sex: Male
  Weight: 119.75 kg

DRUGS (3)
  1. DURAGESIC [Suspect]
     Active Substance: FENTANYL
     Indication: PAIN
     Route: 062
     Dates: start: 201407, end: 201607
  2. DURAGESIC [Suspect]
     Active Substance: FENTANYL
     Indication: PAIN
     Route: 062
     Dates: start: 20160817
  3. DURAGESIC [Suspect]
     Active Substance: FENTANYL
     Indication: PAIN
     Dosage: STRENGTH- 12.5 MCG
     Route: 062
     Dates: start: 201607, end: 20160816

REACTIONS (14)
  - Sinusitis [Unknown]
  - Flushing [Unknown]
  - Pain [Not Recovered/Not Resolved]
  - Therapeutic response unexpected [Unknown]
  - Inadequate analgesia [Not Recovered/Not Resolved]
  - Chest pain [Unknown]
  - Feeling abnormal [Unknown]
  - Blood cholesterol abnormal [Unknown]
  - Respiration abnormal [Unknown]
  - Headache [Unknown]
  - Product quality issue [Not Recovered/Not Resolved]
  - Paraesthesia [Unknown]
  - Drug dose omission [Not Recovered/Not Resolved]
  - Depressed mood [Not Recovered/Not Resolved]

NARRATIVE: CASE EVENT DATE: 2014
